FAERS Safety Report 8451743-4 (Version None)
Quarter: 2012Q2

REPORT INFORMATION
  Report Type: 
  Country: None (occurrence: None)
  Receive Date: 20120620
  Receipt Date: 20120316
  Transmission Date: 20120825
  Serious: No
  Sender: FDA-Public Use
  Company Number: US-VERTEX PHARMACEUTICALS INC.-AE-2012-003773

PATIENT
  Sex: Male
  Weight: 103.51 kg

DRUGS (5)
  1. COPEGUS [Concomitant]
     Indication: HEPATITIS C
     Route: 048
     Dates: start: 20120223
  2. PEGASYS [Concomitant]
     Indication: HEPATITIS C
     Route: 058
     Dates: start: 20120223
  3. TRAMADOL HCL [Concomitant]
     Indication: BACK PAIN
     Route: 048
  4. INCIVEK [Suspect]
     Indication: HEPATITIS C
     Route: 048
     Dates: start: 20120223
  5. COLACE [Concomitant]
     Indication: CONSTIPATION
     Route: 048

REACTIONS (1)
  - ANORECTAL DISCOMFORT [None]
